FAERS Safety Report 5691894-0 (Version None)
Quarter: 2008Q1

REPORT INFORMATION
  Report Type: 
  Country: None (occurrence: None)
  Receive Date: 20080331
  Receipt Date: 20080320
  Transmission Date: 20080703
  Serious: Yes (Disabling, Other)
  Sender: FDA-Public Use
  Company Number: GXKR2008GB02866

PATIENT
  Age: 35 Year
  Sex: Female
  Weight: 87 kg

DRUGS (2)
  1. AMOXICILLIN TRIHYDRATE [Suspect]
     Indication: LOWER RESPIRATORY TRACT INFECTION
     Dosage: 250 MG, TID, ORAL
     Route: 048
     Dates: start: 20080128, end: 20080204
  2. IBUPROFEN [Concomitant]

REACTIONS (2)
  - NEPHRITIS INTERSTITIAL [None]
  - RENAL FAILURE ACUTE [None]
